FAERS Safety Report 5486628-9 (Version None)
Quarter: 2007Q4

REPORT INFORMATION
  Report Type: 
  Country: None (occurrence: None)
  Receive Date: 20071016
  Receipt Date: 20071003
  Transmission Date: 20080405
  Serious: Yes (Hospitalization)
  Sender: FDA-Public Use
  Company Number: JP-AMGEN-US246494

PATIENT
  Sex: Female
  Weight: 52 kg

DRUGS (8)
  1. ENBREL [Suspect]
     Indication: RHEUMATOID ARTHRITIS
     Route: 058
     Dates: start: 20060922, end: 20070904
  2. RHEUMATREX [Suspect]
     Indication: RHEUMATOID ARTHRITIS
     Route: 048
     Dates: start: 20030501, end: 20070907
  3. PREDONINE [Concomitant]
     Indication: RHEUMATOID ARTHRITIS
     Route: 048
     Dates: start: 20030101, end: 20070406
  4. PREDNISOLONE [Concomitant]
     Indication: RHEUMATOID ARTHRITIS
     Route: 048
     Dates: start: 20030101, end: 20070406
  5. FERROMIA [Concomitant]
     Indication: ANAEMIA
     Route: 048
     Dates: end: 20070420
  6. FOLIAMIN [Concomitant]
     Route: 048
     Dates: start: 20030101, end: 20070907
  7. MOBIC [Concomitant]
     Indication: RHEUMATOID ARTHRITIS
     Route: 048
     Dates: start: 20060120, end: 20061222
  8. ACINON [Concomitant]
     Route: 048
     Dates: end: 20070420

REACTIONS (1)
  - CRYPTOGENIC ORGANISING PNEUMONIA [None]
